FAERS Safety Report 4546173-1 (Version None)
Quarter: 2005Q1

REPORT INFORMATION
  Report Type: 
  Country: None (occurrence: None)
  Receive Date: 20050103
  Receipt Date: 20041220
  Transmission Date: 20050727
  Serious: Yes (Other)
  Sender: FDA-Public Use
  Company Number: 2004079272

PATIENT
  Sex: Female
  Weight: 77.5651 kg

DRUGS (5)
  1. ZYRTEC [Suspect]
     Indication: HYPERSENSITIVITY
     Dosage: 10 MG (10 MG, 1 IN 1 D), ORAL
     Route: 048
  2. CELEBREX [Suspect]
     Indication: ARTHRITIS
  3. TOLTERODINE TARTRATE [Suspect]
     Indication: URINARY INCONTINENCE
  4. VALDECOXIB [Concomitant]
  5. ROFECOXIB [Concomitant]

REACTIONS (6)
  - DIZZINESS [None]
  - GLAUCOMA [None]
  - HYPERTONIC BLADDER [None]
  - MEDICATION ERROR [None]
  - OPTIC NERVE DISORDER [None]
  - RASH [None]
